FAERS Safety Report 9133233 (Version 1)
Quarter: 2013Q1

REPORT INFORMATION
  Report Type: Report from Study
  Country: US (occurrence: US)
  Receive Date: 20130129
  Receipt Date: 20130129
  Transmission Date: 20140127
  Serious: No
  Sender: FDA-Public Use
  Company Number: US-ABBOTT-12P-163-0933610-00

PATIENT
  Age: 38 Year
  Sex: Male

DRUGS (9)
  1. HUMIRA 40 MG/0.8 ML PEN [Suspect]
     Indication: PSORIASIS
     Dates: start: 20120413
  2. ADVAIR [Concomitant]
     Indication: ASTHMA
  3. ALBUTEROL [Concomitant]
     Indication: ASTHMA
  4. CLARITIN [Concomitant]
     Indication: HYPERSENSITIVITY
     Dosage: DAILY
  5. CLARITIN [Concomitant]
     Indication: PRURITUS
  6. CLARITIN [Concomitant]
     Indication: PSORIASIS
  7. ZYRTEC [Concomitant]
     Indication: HYPERSENSITIVITY
     Dosage: DAILY
  8. ZYRTEC [Concomitant]
     Indication: PSORIASIS
  9. ZYRTEC [Concomitant]
     Indication: PRURITUS

REACTIONS (1)
  - Injection site haemorrhage [Recovered/Resolved]
